FAERS Safety Report 9892044 (Version 2)
Quarter: 2014Q1

REPORT INFORMATION
  Report Type: Spontaneous
  Country: US (occurrence: US)
  Receive Date: 20140212
  Receipt Date: 20140227
  Transmission Date: 20141002
  Serious: Yes (Hospitalization, Other)
  Sender: FDA-Public Use
  Company Number: US-PFIZER INC-2014038873

PATIENT
  Age: 63 Year
  Sex: Male

DRUGS (2)
  1. SIMVASTATIN [Suspect]
     Dosage: 20 MG, 1X/DAY
  2. GEMFIBROZIL [Concomitant]
     Dosage: UNK

REACTIONS (1)
  - Immune-mediated necrotising myopathy [Recovered/Resolved]
